FAERS Safety Report 10623677 (Version 1)
Quarter: 2014Q4

REPORT INFORMATION
  Report Type: Spontaneous
  Country: GB (occurrence: GB)
  Receive Date: 20141203
  Receipt Date: 20141203
  Transmission Date: 20150529
  Serious: Yes (Death, Hospitalization)
  Sender: FDA-Public Use
  Company Number: GB-BAUSCH-BL-2014-009955

PATIENT
  Age: 79 Year
  Sex: Male

DRUGS (4)
  1. VELCADE [Suspect]
     Active Substance: BORTEZOMIB
     Dosage: 1 DOSAGE/3 WEEKS
     Route: 058
     Dates: end: 20130920
  2. DEXAMETHASONE. [Suspect]
     Active Substance: DEXAMETHASONE
     Route: 048
     Dates: end: 20130920
  3. DEXAMETHASONE. [Suspect]
     Active Substance: DEXAMETHASONE
     Indication: PLASMA CELL MYELOMA
     Route: 048
     Dates: start: 20130611, end: 20130824
  4. VELCADE [Suspect]
     Active Substance: BORTEZOMIB
     Indication: PLASMA CELL MYELOMA
     Dosage: 1 DOSAGE/3 WEEKS
     Route: 058
     Dates: start: 20130611, end: 20130823

REACTIONS (2)
  - Death [Fatal]
  - Liver function test abnormal [Unknown]

NARRATIVE: CASE EVENT DATE: 20131217
